FAERS Safety Report 5657320-2 (Version None)
Quarter: 2008Q1

REPORT INFORMATION
  Report Type: 
  Country: None (occurrence: None)
  Receive Date: 20080310
  Receipt Date: 20080229
  Transmission Date: 20080703
  Serious: Yes (Hospitalization, Other)
  Sender: FDA-Public Use
  Company Number: PHBS2007JP20602

PATIENT
  Age: 50 Year
  Sex: Male
  Weight: 86 kg

DRUGS (15)
  1. RITALIN [Suspect]
     Indication: DEPRESSION
     Dosage: 20 MG, QD
     Route: 048
     Dates: start: 20060106, end: 20060119
  2. RITALIN [Suspect]
     Dosage: 30 MG, QD
     Route: 048
     Dates: start: 20060120, end: 20060302
  3. RITALIN [Suspect]
     Dosage: 40 MG, QD
     Route: 048
     Dates: start: 20060303, end: 20060330
  4. RITALIN [Suspect]
     Dosage: 50 MG, QD
     Route: 048
     Dates: start: 20060331, end: 20060427
  5. RITALIN [Suspect]
     Dosage: 60 MG, QD
     Route: 048
     Dates: start: 20060428, end: 20070803
  6. RITALIN [Suspect]
     Dosage: 50 MG, QD
     Route: 048
     Dates: start: 20060804, end: 20060817
  7. RITALIN [Suspect]
     Dosage: 60 MG, QD
     Route: 048
     Dates: start: 20060818, end: 20061207
  8. RITALIN [Suspect]
     Dosage: 50 MG, QD
     Route: 048
     Dates: start: 20061208, end: 20061221
  9. RITALIN [Suspect]
     Dosage: 60 MG, QD
     Route: 048
     Dates: start: 20061222, end: 20070913
  10. RITALIN [Suspect]
     Dosage: 50 MG, QD
     Route: 048
     Dates: start: 20070914, end: 20071011
  11. RITALIN [Suspect]
     Dosage: 30 MG, QD
     Route: 048
     Dates: start: 20071012, end: 20071108
  12. RITALIN [Suspect]
     Dosage: 20 MG, QD
     Route: 048
     Dates: start: 20071109, end: 20071202
  13. PAXIL [Concomitant]
  14. ANAFRANIL [Concomitant]
  15. AMOXAN [Concomitant]

REACTIONS (7)
  - ALCOHOLISM [None]
  - DRUG DEPENDENCE [None]
  - FALL [None]
  - GASTRIC ULCER [None]
  - LACERATION [None]
  - LOWER LIMB FRACTURE [None]
  - SUICIDE ATTEMPT [None]
